FAERS Safety Report 20481108 (Version 2)
Quarter: 2022Q2

REPORT INFORMATION
  Report Type: Spontaneous
  Country: JP (occurrence: JP)
  Receive Date: 20220216
  Receipt Date: 20220406
  Transmission Date: 20220721
  Serious: Yes (Hospitalization, Other)
  Sender: FDA-Public Use
  Company Number: JP-OTSUKA-2022_005043

PATIENT
  Age: 8 Decade
  Sex: Female

DRUGS (1)
  1. ABILIFY [Suspect]
     Active Substance: ARIPIPRAZOLE
     Indication: Anxiety disorder
     Dosage: UNK
     Route: 065

REACTIONS (5)
  - Bedridden [Unknown]
  - Dementia with Lewy bodies [Unknown]
  - Fall [Unknown]
  - Parkinson^s disease [Unknown]
  - Product use in unapproved indication [Unknown]
